FAERS Safety Report 9183427 (Version 1)
Quarter: 2012Q4

REPORT INFORMATION
  Report Type: 
  Country: CL (occurrence: CL)
  Receive Date: 20121030
  Receipt Date: 20121030
  Transmission Date: 20130627
  Serious: Yes (Other)
  Sender: FDA-Public Use
  Company Number: PHHY2012CL096882

PATIENT
  Age: 82 Year
  Sex: Female

DRUGS (7)
  1. ACLASTA [Suspect]
     Indication: OSTEOPOROSIS
     Dosage: 5 mg, UNK
     Route: 042
     Dates: start: 201110
  2. TAREG [Concomitant]
  3. GASTRIUM//OMEPRAZOLE [Concomitant]
  4. EUTIROX [Concomitant]
  5. CONCOR [Concomitant]
  6. ALOPURINOL [Concomitant]
  7. CADUET [Concomitant]

REACTIONS (3)
  - Deafness [Unknown]
  - Influenza [Unknown]
  - Pyrexia [Unknown]
